FAERS Safety Report 23514411 (Version 1)
Quarter: 2024Q1

REPORT INFORMATION
  Report Type: Spontaneous
  Country: PL (occurrence: PL)
  Receive Date: 20240212
  Receipt Date: 20240212
  Transmission Date: 20240410
  Serious: Yes (Death)
  Sender: FDA-Public Use
  Company Number: PL-002147023-NVSC2024PL029979

PATIENT
  Sex: Male

DRUGS (2)
  1. LUTATHERA [Suspect]
     Active Substance: LUTETIUM OXODOTREOTIDE LU-177
     Indication: Product used for unknown indication
     Dosage: 7400 MBQ
     Route: 065
     Dates: start: 20231228
  2. ARGININE\LYSINE [Suspect]
     Active Substance: ARGININE\LYSINE
     Indication: Product used for unknown indication
     Dosage: UNK (25G PLUS 25G)
     Route: 065
     Dates: start: 20231228

REACTIONS (1)
  - Death [Fatal]
